FAERS Safety Report 18599450 (Version 2)
Quarter: 2021Q1

REPORT INFORMATION
  Report Type: Report from Study
  Country: DE (occurrence: DE)
  Receive Date: 20201210
  Receipt Date: 20210105
  Transmission Date: 20210419
  Serious: Yes (Hospitalization)
  Sender: FDA-Public Use
  Company Number: NVSC2020DE324798

PATIENT
  Sex: Female
  Weight: 73 kg

DRUGS (3)
  1. FULVESTRANT. [Suspect]
     Active Substance: FULVESTRANT
     Indication: BREAST CANCER METASTATIC
     Dosage: 500 MG, QD (OTHER, D1, 15, 29)
     Route: 030
     Dates: start: 20200810
  2. MCP [Concomitant]
     Active Substance: METOCLOPRAMIDE HYDROCHLORIDE
     Indication: PRODUCT USED FOR UNKNOWN INDICATION
     Dosage: 1 DF (INTAKE BEFORE RIBOCICLIB)
     Route: 065
     Dates: start: 20201214
  3. KISQALI [Suspect]
     Active Substance: RIBOCICLIB
     Indication: BREAST CANCER METASTATIC
     Dosage: 600 MG, QD (REGIMEN 21 DAYS INTAKE, 7 DAYS PAUSE)
     Route: 048
     Dates: start: 20200810

REACTIONS (6)
  - Erysipelas [Recovered/Resolved]
  - Taste disorder [Unknown]
  - Bone pain [Recovered/Resolved]
  - Decreased appetite [Unknown]
  - Nausea [Unknown]
  - Metastases to bone [Recovered/Resolved]

NARRATIVE: CASE EVENT DATE: 20200927
